FAERS Safety Report 4864999-1 (Version None)
Quarter: 2005Q4

REPORT INFORMATION
  Report Type: 
  Country: None (occurrence: None)
  Receive Date: 20051223
  Receipt Date: 20051004
  Transmission Date: 20060501
  Serious: Yes (Other)
  Sender: FDA-Public Use
  Company Number: PHEH2005US11037

PATIENT
  Age: 62 Year
  Sex: Female
  Weight: 63.945 kg

DRUGS (9)
  1. ZOMETA [Suspect]
     Indication: METASTASES TO BONE
     Dosage: 4 MG, EVERY 4 WEEKS
     Route: 042
     Dates: start: 20040831, end: 20050823
  2. GEMZAR [Concomitant]
     Dates: start: 20040210, end: 20041206
  3. TRASTUZUMAB [Concomitant]
     Dates: start: 20021217, end: 20041206
  4. VINORELBINE TARTRATE [Concomitant]
     Dates: start: 20021217, end: 20040127
  5. ADRIAMYCIN [Concomitant]
     Dates: start: 20020815, end: 20021119
  6. TAXOTERE [Concomitant]
     Dates: start: 20020815, end: 20021119
  7. FLUOROURACIL [Concomitant]
     Dates: start: 20020815, end: 20021119
  8. LEUKOVORIN DABUR [Concomitant]
     Dates: start: 20020815, end: 20021119
  9. SALINE [Suspect]

REACTIONS (10)
  - BONE DISORDER [None]
  - GINGIVAL INFECTION [None]
  - ORAL SOFT TISSUE DISORDER [None]
  - OSTEOMYELITIS [None]
  - OSTEONECROSIS [None]
  - PAIN [None]
  - PURULENT DISCHARGE [None]
  - SOFT TISSUE INFECTION [None]
  - SWELLING [None]
  - TOOTH DISORDER [None]
